FAERS Safety Report 20441847 (Version 1)
Quarter: 2022Q1

REPORT INFORMATION
  Report Type: Spontaneous
  Country: US (occurrence: None)
  Receive Date: 20220208
  Receipt Date: 20220208
  Transmission Date: 20220424
  Serious: Yes (Other)
  Sender: FDA-Public Use
  Company Number: US-ROCHE-3020023

PATIENT
  Sex: Female
  Weight: 61.290 kg

DRUGS (2)
  1. AVASTIN [Suspect]
     Active Substance: BEVACIZUMAB
     Indication: Neovascular age-related macular degeneration
     Dosage: LEFT EYE ;ONGOING: NO
     Route: 065
     Dates: start: 20180317, end: 20191017
  2. EYLEA [Suspect]
     Active Substance: AFLIBERCEPT
     Indication: Product used for unknown indication
     Route: 065

REACTIONS (4)
  - Blindness [Recovered/Resolved]
  - Visual impairment [Unknown]
  - Neovascular age-related macular degeneration [Not Recovered/Not Resolved]
  - Off label use [Unknown]
